FAERS Safety Report 13503604 (Version 1)
Quarter: 2017Q2

REPORT INFORMATION
  Report Type: Spontaneous
  Country: US (occurrence: US)
  Receive Date: 20170502
  Receipt Date: 20170502
  Transmission Date: 20170830
  Serious: Yes (Other)
  Sender: FDA-Public Use
  Company Number: None

PATIENT
  Age: 65 Year
  Sex: Male
  Weight: 91.63 kg

DRUGS (8)
  1. FISH OIL [Concomitant]
     Active Substance: FISH OIL
  2. BACTRIM [Suspect]
     Active Substance: SULFAMETHOXAZOLE\TRIMETHOPRIM
     Indication: POSTOPERATIVE CARE
     Dosage: 1 PILL TWICE DAILY MOUTH
     Route: 048
     Dates: start: 20170113, end: 20170113
  3. LISINOPRIL. [Concomitant]
     Active Substance: LISINOPRIL
  4. INVOKANA [Concomitant]
     Active Substance: CANAGLIFLOZIN
  5. BAYER ASPIRIN LOW DOSE [Concomitant]
  6. ATENOLOL/CHLORTHALIDONE [Concomitant]
     Active Substance: ATENOLOL\CHLORTHALIDONE
  7. AMITRIPTYLINE [Concomitant]
     Active Substance: AMITRIPTYLINE
  8. PRAVASTATIN SODIUM. [Concomitant]
     Active Substance: PRAVASTATIN SODIUM

REACTIONS (3)
  - Anaphylactic reaction [None]
  - Speech disorder [None]
  - Aphonia [None]

NARRATIVE: CASE EVENT DATE: 20170113
